FAERS Safety Report 8568003-3 (Version None)
Quarter: 2012Q3

REPORT INFORMATION
  Report Type: 
  Country: None (occurrence: None)
  Receive Date: 20120803
  Receipt Date: 20111023
  Transmission Date: 20120928
  Serious: No
  Sender: FDA-Public Use
  Company Number: US-ABBOTT-11P-163-0868196-00

PATIENT
  Sex: Male
  Weight: 90.8 kg

DRUGS (4)
  1. BP MEDICATION [Concomitant]
     Indication: BLOOD PRESSURE
  2. NIASPAN [Suspect]
     Indication: PRODUCT USED FOR UNKNOWN INDICATION
     Dates: start: 20061001
  3. ASPIRIN [Concomitant]
     Indication: PRODUCT USED FOR UNKNOWN INDICATION
  4. PROSTATE MEDICATION [Concomitant]
     Indication: PROSTATIC DISORDER

REACTIONS (1)
  - PRURITUS [None]
